FAERS Safety Report 11055769 (Version 1)
Quarter: 2015Q2

REPORT INFORMATION
  Report Type: Spontaneous
  Country: US (occurrence: US)
  Receive Date: 20150422
  Receipt Date: 20150422
  Transmission Date: 20150821
  Serious: No
  Sender: FDA-Public Use
  Company Number: US-009507513-1504USA018385

PATIENT

DRUGS (1)
  1. BELSOMRA [Suspect]
     Active Substance: SUVOREXANT
     Indication: SLEEP DISORDER THERAPY
     Dosage: UNK
     Route: 048

REACTIONS (7)
  - Feeling cold [Unknown]
  - Nightmare [Unknown]
  - Hyperhidrosis [Unknown]
  - Drug ineffective [Unknown]
  - Nervousness [Unknown]
  - Nocturia [Unknown]
  - Headache [Unknown]
